FAERS Safety Report 25092268 (Version 4)
Quarter: 2025Q4

REPORT INFORMATION
  Report Type: Report from Study
  Country: US (occurrence: None)
  Receive Date: 20250319
  Receipt Date: 20251017
  Transmission Date: 20260118
  Serious: Yes (Other)
  Sender: UCB
  Company Number: US-UCBSA-2025015372

PATIENT
  Age: 12 Year
  Weight: 30 kg

DRUGS (3)
  1. FENFLURAMINE [Suspect]
     Active Substance: FENFLURAMINE
     Indication: Seizure
     Dosage: 0.34 MILLIGRAM/KILOGRAM/DAY TOTALLY 8.8 MILLIGRAM PER DAY.
  2. FENFLURAMINE [Suspect]
     Active Substance: FENFLURAMINE
     Dosage: 5 MILLILITER, 2X/DAY (BID)
  3. FENFLURAMINE [Suspect]
     Active Substance: FENFLURAMINE
     Dosage: 7 MILLILITER, 2X/DAY (BID)

REACTIONS (4)
  - Tricuspid valve incompetence [Not Recovered/Not Resolved]
  - Tricuspid valve thickening [Not Recovered/Not Resolved]
  - Tricuspid valve prolapse [Not Recovered/Not Resolved]
  - Overdose [Unknown]
